APPROVED DRUG PRODUCT: AMLODIPINE BESYLATE
Active Ingredient: AMLODIPINE BESYLATE
Strength: EQ 10MG BASE
Dosage Form/Route: TABLET;ORAL
Application: A076418 | Product #003
Applicant: MYLAN PHARMACEUTICALS INC
Approved: Oct 3, 2005 | RLD: No | RS: No | Type: DISCN